FAERS Safety Report 4379601-5 (Version None)
Quarter: 2004Q2

REPORT INFORMATION
  Report Type: 
  Country: None (occurrence: None)
  Receive Date: 20040414
  Receipt Date: 20040217
  Transmission Date: 20050107
  Serious: No
  Sender: FDA-Public Use
  Company Number: 2004S1000027

PATIENT
  Age: 46 Year
  Sex: Male
  Weight: 50 kg

DRUGS (6)
  1. CUBICIN [Suspect]
     Indication: STAPHYLOCOCCAL INFECTION
     Dosage: 200 MG; QD; IV
     Route: 042
     Dates: start: 20040212
  2. RIFAMPIN [Concomitant]
  3. VANCOMYCIN [Concomitant]
  4. GENTAMICIN [Concomitant]
  5. HEPARIN [Concomitant]
  6. COUMADIN [Concomitant]

REACTIONS (1)
  - RASH ERYTHEMATOUS [None]
